FAERS Safety Report 20790238 (Version 2)
Quarter: 2022Q2

REPORT INFORMATION
  Report Type: Report from Study
  Country: KR (occurrence: None)
  Receive Date: 20220505
  Receipt Date: 20220606
  Transmission Date: 20220721
  Serious: Yes (Death, Other)
  Sender: FDA-Public Use
  Company Number: KR-Merck Healthcare KGaA-9317348

PATIENT
  Age: 55 Year
  Sex: Male
  Weight: 76 kg

DRUGS (2)
  1. AVELUMAB [Suspect]
     Active Substance: AVELUMAB
     Indication: Transitional cell carcinoma
     Route: 042
     Dates: start: 20211202
  2. AVELUMAB [Suspect]
     Active Substance: AVELUMAB
     Route: 042
     Dates: start: 20220414

REACTIONS (2)
  - Ileus [Fatal]
  - Overdose [Unknown]

NARRATIVE: CASE EVENT DATE: 20211202
